FAERS Safety Report 5847720-X (Version None)
Quarter: 2008Q3

REPORT INFORMATION
  Report Type: 
  Country: None (occurrence: None)
  Receive Date: 20080814
  Receipt Date: 20080729
  Transmission Date: 20090109
  Serious: Yes (Disabling)
  Sender: FDA-Public Use
  Company Number: 2008PV000060

PATIENT
  Age: 47 Year
  Sex: Female

DRUGS (7)
  1. DEPOCYT [Suspect]
     Indication: METASTASES TO MENINGES
     Dosage: 50 MG;BIW;INTH
     Route: 037
     Dates: start: 20071217, end: 20080218
  2. CISPLATIN [Concomitant]
  3. GEMCITABINE HCL [Concomitant]
  4. LEVETIRACETAM [Concomitant]
  5. VALPROATE SODIUM [Concomitant]
  6. PANTOPRAZOLE SODIUM [Concomitant]
  7. DEXAMETHASONE TAB [Concomitant]

REACTIONS (3)
  - CAUDA EQUINA SYNDROME [None]
  - PARESIS [None]
  - URINARY RETENTION [None]
